FAERS Safety Report 15708613 (Version 1)
Quarter: 2018Q4

REPORT INFORMATION
  Report Type: Spontaneous
  Country: US (occurrence: US)
  Receive Date: 20181211
  Receipt Date: 20181211
  Transmission Date: 20190205
  Serious: Yes (Death, Life-Threatening, Hospitalization, Other)
  Sender: FDA-Public Use
  Company Number: US-TORRENT-00007103

PATIENT
  Age: 21 Year
  Sex: Female
  Weight: 59 kg

DRUGS (6)
  1. CARBAMAZEPINE. [Suspect]
     Active Substance: CARBAMAZEPINE
     Indication: PRODUCT USED FOR UNKNOWN INDICATION
     Dosage: UNKNOWN
  2. IBUPROFEN. [Suspect]
     Active Substance: IBUPROFEN
     Indication: PRODUCT USED FOR UNKNOWN INDICATION
     Dosage: UNKNOWN
  3. HYDROXYZINE [Suspect]
     Active Substance: HYDROXYZINE HYDROCHLORIDE
     Indication: PRODUCT USED FOR UNKNOWN INDICATION
     Dosage: UNKNOWN
  4. LAMOTRIGINE. [Suspect]
     Active Substance: LAMOTRIGINE
     Indication: PRODUCT USED FOR UNKNOWN INDICATION
     Dosage: UNKNOWN
  5. TOPIRAMATE. [Suspect]
     Active Substance: TOPIRAMATE
     Indication: PRODUCT USED FOR UNKNOWN INDICATION
     Dosage: UNKNOWN
  6. FLUOXETINE [Suspect]
     Active Substance: FLUOXETINE HYDROCHLORIDE
     Indication: PRODUCT USED FOR UNKNOWN INDICATION
     Dosage: UNKNOWN

REACTIONS (15)
  - Cardiac arrest [Fatal]
  - Electrocardiogram QT prolonged [Fatal]
  - Intentional overdose [Fatal]
  - Completed suicide [Fatal]
  - Electrocardiogram QRS complex shortened [Fatal]
  - Toxicity to various agents [Fatal]
  - Dysarthria [Fatal]
  - Generalised tonic-clonic seizure [Fatal]
  - Mental status changes [Fatal]
  - Acute respiratory distress syndrome [Fatal]
  - Gait disturbance [Fatal]
  - Confusional state [Fatal]
  - Tachycardia [Fatal]
  - Hypertension [Fatal]
  - Serotonin syndrome [Fatal]
